FAERS Safety Report 24705782 (Version 1)
Quarter: 2024Q4

REPORT INFORMATION
  Report Type: Spontaneous
  Country: US (occurrence: None)
  Receive Date: 20241205
  Receipt Date: 20241205
  Transmission Date: 20250115
  Serious: Yes (Life-Threatening, Disabling, Other)
  Sender: Public
  Company Number: None

PATIENT
  Age: 43 Year
  Sex: Female
  Weight: 70.2 kg

DRUGS (1)
  1. MONTELUKAST [Suspect]
     Active Substance: MONTELUKAST
     Indication: Rhinitis allergic
     Dosage: OTHER QUANTITY : 30 TABLET(S);?FREQUENCY : DAILY;?
     Route: 048
     Dates: start: 20240401, end: 20241203

REACTIONS (14)
  - Major depression [None]
  - Feeling of despair [None]
  - Suicidal ideation [None]
  - Dyskinesia [None]
  - Mood swings [None]
  - Insomnia [None]
  - Amnesia [None]
  - Tremor [None]
  - Dysphemia [None]
  - Hot flush [None]
  - Anger [None]
  - Anxiety [None]
  - Confusional state [None]
  - Product quality issue [None]

NARRATIVE: CASE EVENT DATE: 20241204
